FAERS Safety Report 8361429-2 (Version None)
Quarter: 2012Q2

REPORT INFORMATION
  Report Type: 
  Country: None (occurrence: None)
  Receive Date: 20120515
  Receipt Date: 20110826
  Transmission Date: 20120825
  Serious: No
  Sender: FDA-Public Use
  Company Number: US-ALEXION-A201101306

PATIENT
  Sex: Female

DRUGS (4)
  1. SOLIRIS [Suspect]
     Dosage: 900 MG Q2W
     Route: 042
     Dates: start: 20100601
  2. MEDROXYPROGESTERONE [Concomitant]
     Dosage: 150 MG Q 3 MONTHS
     Route: 030
  3. SOLIRIS [Suspect]
     Indication: PAROXYSMAL NOCTURNAL HAEMOGLOBINURIA
     Dosage: 600 MG QW X 4
     Route: 042
     Dates: start: 20100501
  4. RELPAX [Concomitant]
     Indication: PREMEDICATION
     Dosage: 20 MG PRN

REACTIONS (3)
  - DEPRESSED MOOD [None]
  - OLIGOMENORRHOEA [None]
  - HAEMOGLOBIN DECREASED [None]
